FAERS Safety Report 7166600-3 (Version None)
Quarter: 2010Q4

REPORT INFORMATION
  Report Type: 
  Country: None (occurrence: None)
  Receive Date: 20101216
  Receipt Date: 20101213
  Transmission Date: 20110411
  Serious: Yes (Hospitalization, Other)
  Sender: FDA-Public Use
  Company Number: AU-SANOFI-AVENTIS-2010SA075147

PATIENT
  Age: 48 Year
  Sex: Female

DRUGS (2)
  1. ARAVA [Suspect]
     Route: 048
     Dates: start: 20100421
  2. PREDNISONE [Concomitant]
     Route: 065

REACTIONS (2)
  - RHEUMATOID ARTHRITIS [None]
  - SPINAL DISORDER [None]
